FAERS Safety Report 12050145 (Version 1)
Quarter: 2016Q1

REPORT INFORMATION
  Report Type: Spontaneous
  Country: US (occurrence: None)
  Receive Date: 20160208
  Receipt Date: 20160208
  Transmission Date: 20160526
  Serious: No
  Sender: FDA-Public Use
  Company Number: None

PATIENT
  Age: 35 Year
  Sex: Male
  Weight: 76.2 kg

DRUGS (7)
  1. L-CARNATINE [Concomitant]
  2. VITAMIN B COMPLEX [Concomitant]
     Active Substance: CYANOCOBALAMIN\DEXPANTHENOL\NIACINAMIDE\PYRIDOXINE HYDROCHLORIDE\RIBOFLAVIN 5^-PHOSPHATE SODIUM\THIAMINE HYDROCHLORIDE\VITAMIN B COMPLEX
  3. DEXAMETHASONE 1 MG TABLET ROXANE LABS [Suspect]
     Active Substance: DEXAMETHASONE
     Indication: GINGIVAL GRAFT
     Dosage: 15 PILLS THREE TIMES DAILY TAKEN BY MOUTH
     Route: 048
     Dates: start: 20160205, end: 20160206
  4. GLUCOSAMINE [Concomitant]
     Active Substance: GLUCOSAMINE
  5. LIOTHYRONINE [Concomitant]
     Active Substance: LIOTHYRONINE
  6. LEVOTHYROXINE. [Concomitant]
     Active Substance: LEVOTHYROXINE
  7. A-DRENAL [Concomitant]

REACTIONS (1)
  - Hiccups [None]

NARRATIVE: CASE EVENT DATE: 20160206
